FAERS Safety Report 10373831 (Version 1)
Quarter: 2014Q1

REPORT INFORMATION
  Report Type: Spontaneous
  Country: US (occurrence: None)
  Receive Date: 20140306
  Receipt Date: 20140306
  Transmission Date: 20141002
  Serious: Yes (Death)
  Sender: FDA-Public Use
  Company Number: 163-21880-13084197

PATIENT
  Age: 64 Year
  Sex: Female

DRUGS (15)
  1. REVLIMID [Suspect]
     Indication: PLASMA CELL MYELOMA
     Dosage: 25 MG, 21 IN 28 D, PO
     Route: 048
     Dates: start: 201308, end: 2013
  2. DEXAMETHASONE [Concomitant]
  3. FORMOTEROL HFA (OTHER RESPIRATORY SYSTEM PRODUCTS) [Concomitant]
  4. ALBUTEROL HFA (SALBUTAMOL) [Concomitant]
  5. FLUTICASONE NS (SPRAY (NOT INHALATION)) [Concomitant]
  6. DICLOFENAC [Concomitant]
  7. ASA (ACETYLSALICYLIC ACID) [Concomitant]
  8. ATORVASTATIN [Concomitant]
  9. LISINOPRIL [Concomitant]
  10. HCTZ (HYDROCHLOROTHIAZIDE) [Concomitant]
  11. KCL (POTASSIUM CHLORIDE) [Concomitant]
  12. LEVOTHYROXINE [Concomitant]
  13. TOPIRAMATE [Concomitant]
  14. IBUPROFEN [Concomitant]
  15. MOMETASONE [Concomitant]

REACTIONS (1)
  - Cerebrovascular accident [None]
